FAERS Safety Report 17194720 (Version 8)
Quarter: 2020Q3

REPORT INFORMATION
  Report Type: Report from Study
  Country: US (occurrence: US)
  Receive Date: 20191224
  Receipt Date: 20200924
  Transmission Date: 20201102
  Serious: Yes (Hospitalization, Other)
  Sender: FDA-Public Use
  Company Number: US-ADVANZ PHARMA-201912002914

PATIENT

DRUGS (16)
  1. PREDNISONE. [Suspect]
     Active Substance: PREDNISONE
     Indication: ASTHMA
     Dosage: UNK
     Route: 065
  2. PRILOSEC [Concomitant]
     Active Substance: OMEPRAZOLE MAGNESIUM
     Indication: PRODUCT USED FOR UNKNOWN INDICATION
     Dosage: UNK
  3. HUMIRA [Suspect]
     Active Substance: ADALIMUMAB
     Dosage: 1 DOSAGE FORM, WEEKLY, (1 IN 1 WK)
     Route: 058
  4. ZANTAC [Concomitant]
     Active Substance: RANITIDINE HYDROCHLORIDE
     Indication: PRODUCT USED FOR UNKNOWN INDICATION
     Dosage: UNK
  5. LOSARTAN. [Concomitant]
     Active Substance: LOSARTAN
     Indication: PRODUCT USED FOR UNKNOWN INDICATION
     Dosage: UNK
  6. HYDROXYCHLOROQUINE [Suspect]
     Active Substance: HYDROXYCHLOROQUINE
     Indication: PRODUCT USED FOR UNKNOWN INDICATION
     Dosage: UNK, PLAQUENIL
     Route: 065
     Dates: end: 20190825
  7. HUMIRA [Suspect]
     Active Substance: ADALIMUMAB
     Indication: RHEUMATOID ARTHRITIS
     Dosage: 1 DOSAGE FORM,(1 IN 2 WK), 40MG/0.8ML
     Route: 058
     Dates: start: 2014
  8. ELIQUIS [Concomitant]
     Active Substance: APIXABAN
     Indication: PRODUCT USED FOR UNKNOWN INDICATION
     Dosage: UNK
  9. FLEXERIL [Concomitant]
     Active Substance: CYCLOBENZAPRINE HYDROCHLORIDE
     Indication: PRODUCT USED FOR UNKNOWN INDICATION
     Dosage: UNK
  10. HUMIRA [Suspect]
     Active Substance: ADALIMUMAB
     Dosage: UNK,SOLUTION FOR INFUSION IN PRE?FILLED SYRINGE
     Route: 058
     Dates: start: 201909, end: 2019
  11. SULFASALAZINE. [Suspect]
     Active Substance: SULFASALAZINE
     Indication: PRODUCT USED FOR UNKNOWN INDICATION
     Dosage: 1 DOSAGE FORM, QD(1 IN 1D)
     Route: 065
     Dates: start: 20191122
  12. HUMIRA [Suspect]
     Active Substance: ADALIMUMAB
     Indication: RHEUMATOID ARTHRITIS
     Dosage: 1 DOSAGE FORM, WEEKLY,CITRATE FREE (1 IN 1 WK),40MG/0.4ML
     Route: 058
  13. FOLIC (FOLIC ACID) [Concomitant]
     Indication: PRODUCT USED FOR UNKNOWN INDICATION
     Dosage: UNK
     Route: 065
  14. PREDNISONE. [Suspect]
     Active Substance: PREDNISONE
     Indication: WHEEZING
  15. HUMIRA [Suspect]
     Active Substance: ADALIMUMAB
     Dosage: 1 DOSAGE FORM, WEEKLY,(1 IN 1 WK)
     Route: 058
  16. IRON [Concomitant]
     Active Substance: IRON
     Indication: PRODUCT USED FOR UNKNOWN INDICATION
     Dosage: UNK
     Route: 065

REACTIONS (28)
  - Asthma [Unknown]
  - Asthma [Unknown]
  - Retinal toxicity [Recovering/Resolving]
  - Spinal osteoarthritis [Unknown]
  - Joint swelling [Recovering/Resolving]
  - Blood potassium decreased [Unknown]
  - Rib fracture [Recovering/Resolving]
  - Musculoskeletal disorder [Unknown]
  - Arthralgia [Unknown]
  - Fall [Unknown]
  - Dental caries [Unknown]
  - Chest X-ray abnormal [Unknown]
  - Pyrexia [Not Recovered/Not Resolved]
  - Blood pressure fluctuation [Unknown]
  - Therapeutic response shortened [Unknown]
  - Pneumonia [Recovered/Resolved]
  - Seasonal allergy [Unknown]
  - Arthralgia [Unknown]
  - White blood cell count increased [Unknown]
  - Musculoskeletal chest pain [Unknown]
  - Therapeutic response shortened [Unknown]
  - Respiratory tract infection bacterial [Unknown]
  - Pain [Unknown]
  - Chest discomfort [Unknown]
  - Glaucoma [Unknown]
  - Wheelchair user [Unknown]
  - Osteoarthritis [Unknown]
  - Nausea [Unknown]

NARRATIVE: CASE EVENT DATE: 2017
